FAERS Safety Report 10357250 (Version 1)
Quarter: 2014Q3

REPORT INFORMATION
  Report Type: Spontaneous
  Country: FR (occurrence: FR)
  Receive Date: 20140801
  Receipt Date: 20140801
  Transmission Date: 20150326
  Serious: Yes (Hospitalization)
  Sender: FDA-Public Use
  Company Number: PHHY2014FR092511

PATIENT
  Age: 40 Year
  Sex: Female

DRUGS (11)
  1. SUFENTANIL [Suspect]
     Active Substance: SUFENTANIL
     Indication: GENERAL ANAESTHESIA
     Dosage: 70 UG, UNK
     Route: 042
     Dates: start: 20140513, end: 20140513
  2. DROLEPTAN [Suspect]
     Active Substance: DROPERIDOL
     Dosage: UNK UKN, UNK
     Route: 042
     Dates: start: 20140513, end: 20140513
  3. PROFENID [Suspect]
     Active Substance: KETOPROFEN
     Dosage: 100 MG, ONCE/SINGLE
     Route: 042
     Dates: start: 20140513, end: 20140513
  4. TRACRIUM [Suspect]
     Active Substance: ATRACURIUM BESYLATE
     Dosage: UNK UKN, UNK
     Route: 065
     Dates: start: 20140513, end: 20140513
  5. EPHEDRINE [Suspect]
     Active Substance: EPHEDRINE
     Dosage: UNK UKN, UNK
     Route: 065
     Dates: start: 20140513, end: 20140513
  6. XYLOCAINE [Suspect]
     Active Substance: LIDOCAINE HYDROCHLORIDE
     Dosage: UNK UKN, UNK
     Dates: start: 20140513, end: 20140513
  7. KETAMINE [Suspect]
     Active Substance: KETAMINE
     Dosage: UNK UKN, UNK
     Route: 042
     Dates: start: 20140513, end: 20140513
  8. AMOXICILLIN CLAVULANIC ACID SANDOZ [Suspect]
     Active Substance: AMOXICILLIN\CLAVULANIC ACID
     Indication: PROPHYLAXIS
     Dosage: 100 ML, ONCE/SINGLE
     Route: 042
     Dates: start: 20140513, end: 20140513
  9. DEXAMETHASONE. [Suspect]
     Active Substance: DEXAMETHASONE
     Dosage: 8 MG, UNK
     Route: 065
     Dates: start: 20140513, end: 20140513
  10. SEVORANE [Suspect]
     Active Substance: SEVOFLURANE
     Indication: GENERAL ANAESTHESIA
     Dosage: UNK UKN, UNK
     Route: 065
     Dates: start: 20140513, end: 20140513
  11. DIPRIVAN [Suspect]
     Active Substance: PROPOFOL
     Indication: GENERAL ANAESTHESIA
     Dosage: UNK UKN, UNK
     Route: 042
     Dates: start: 20140513, end: 20140513

REACTIONS (2)
  - Oliguria [Recovered/Resolved]
  - Renal failure acute [Recovered/Resolved]

NARRATIVE: CASE EVENT DATE: 20140514
